FAERS Safety Report 7916748-8 (Version None)
Quarter: 2011Q4

REPORT INFORMATION
  Report Type: 
  Country: None (occurrence: None)
  Receive Date: 20111114
  Receipt Date: 20111104
  Transmission Date: 20120403
  Serious: Yes (Other)
  Sender: FDA-Public Use
  Company Number: 1000025257

PATIENT
  Age: 40 Year
  Sex: Female
  Weight: 122.5 kg

DRUGS (4)
  1. LEXAPRO [Suspect]
     Indication: DEPRESSION
     Dosage: 10 MG (10 MG, 1 IN 1 D), ORAL, 20 MG (20 MG, 1 IN 1 D), ORAL
     Route: 048
     Dates: start: 20101001, end: 20101101
  2. LEXAPRO [Suspect]
     Indication: DEPRESSION
     Dosage: 10 MG (10 MG, 1 IN 1 D), ORAL, 20 MG (20 MG, 1 IN 1 D), ORAL
     Route: 048
     Dates: start: 20101101
  3. SYNTHROID (LEVOTHYROZINE SODIUM) (LEVOTHYROXINE SODIUM) [Concomitant]
  4. WELLBUTRIN (BUPROPION HYDROCHLORIDE) (BUPROPION HYDROCHLORIDE) [Concomitant]

REACTIONS (9)
  - ARTHRALGIA [None]
  - VISION BLURRED [None]
  - CONSTIPATION [None]
  - IRRITABLE BOWEL SYNDROME [None]
  - OEDEMA [None]
  - FLATULENCE [None]
  - WEIGHT DECREASED [None]
  - HYPERHIDROSIS [None]
  - CELLULITIS [None]
